FAERS Safety Report 4884288-9 (Version None)
Quarter: 2005Q4

REPORT INFORMATION
  Report Type: 
  Country: None (occurrence: None)
  Receive Date: 20051201
  Receipt Date: 20050825
  Transmission Date: 20060501
  Serious: No
  Sender: FDA-Public Use
  Company Number: 2005PV001614

PATIENT
  Age: 50 Year
  Sex: Female
  Weight: 87.0906 kg

DRUGS (4)
  1. BYETTA [Suspect]
     Indication: DIABETES MELLITUS NON-INSULIN-DEPENDENT
     Dosage: 5MCG;BID;SC
     Route: 058
     Dates: start: 20050817
  2. GLUCOPHAGE [Concomitant]
  3. AMARYL [Concomitant]
  4. LEVAQUIN [Concomitant]

REACTIONS (2)
  - INJECTION SITE PAIN [None]
  - WEIGHT DECREASED [None]
